FAERS Safety Report 4641504-6 (Version None)
Quarter: 2005Q2

REPORT INFORMATION
  Report Type: 
  Country: None (occurrence: None)
  Receive Date: 20050421
  Receipt Date: 20050407
  Transmission Date: 20051028
  Serious: Yes (Other)
  Sender: FDA-Public Use
  Company Number: JP-GLAXOSMITHKLINE-B0377840A

PATIENT

DRUGS (2)
  1. BECONASE [Suspect]
     Route: 055
  2. FLUTIDE DISKUS [Suspect]
     Route: 055

REACTIONS (1)
  - CUSHING'S SYNDROME [None]
